FAERS Safety Report 17174531 (Version 1)
Quarter: 2019Q4

REPORT INFORMATION
  Report Type: Spontaneous
  Country: US (occurrence: US)
  Receive Date: 20191219
  Receipt Date: 20191219
  Transmission Date: 20200122
  Serious: No
  Sender: FDA-Public Use
  Company Number: US-UCBSA-2014002958

PATIENT
  Age: 40 Year
  Sex: Female
  Weight: 49.89 kg

DRUGS (4)
  1. CIMZIA [Suspect]
     Active Substance: CERTOLIZUMAB PEGOL
     Indication: CROHN^S DISEASE
     Dosage: 400 MG, EV 4 WEEKS
     Dates: start: 20090403
  2. DULOXETINE. [Concomitant]
     Active Substance: DULOXETINE
     Indication: PAIN
     Dosage: 60, TWICE DAILY
  3. ATENOLOL. [Concomitant]
     Active Substance: ATENOLOL
     Indication: BLOOD PRESSURE MEASUREMENT
     Dosage: DOSE: 50, FREUENCY :1
     Dates: start: 201102
  4. CLONAZEPAM. [Concomitant]
     Active Substance: CLONAZEPAM
     Indication: BLOOD PRESSURE MEASUREMENT
     Dosage: 0.5, TWICE DAILY
     Dates: start: 199508, end: 201010

REACTIONS (2)
  - Abscess [Not Recovered/Not Resolved]
  - Abscess drainage [Not Recovered/Not Resolved]

NARRATIVE: CASE EVENT DATE: 201406
